FAERS Safety Report 8381206-6 (Version None)
Quarter: 2012Q2

REPORT INFORMATION
  Report Type: 
  Country: None (occurrence: None)
  Receive Date: 20120523
  Receipt Date: 20120510
  Transmission Date: 20120825
  Serious: Yes (Other)
  Sender: FDA-Public Use
  Company Number: US-ELI_LILLY_AND_COMPANY-US201009008277

PATIENT
  Sex: Female

DRUGS (5)
  1. FORTEO [Suspect]
     Dosage: 20 UG, QD
  2. FORTEO [Suspect]
     Dosage: 20 UG, QD
     Route: 065
  3. FORTEO [Suspect]
     Dosage: 20 UG, QD
     Route: 065
  4. FORTEO [Suspect]
     Indication: OSTEOPOROSIS
     Dosage: 20 UG, QD
     Route: 065
     Dates: start: 20100901
  5. FORTEO [Suspect]
     Dosage: 20 UG, QD
     Route: 065

REACTIONS (20)
  - ARTHRITIS [None]
  - MOOD ALTERED [None]
  - LOWER LIMB FRACTURE [None]
  - VISUAL ACUITY REDUCED [None]
  - FATIGUE [None]
  - FALL [None]
  - JOINT EFFUSION [None]
  - ORAL PAIN [None]
  - GAIT DISTURBANCE [None]
  - CONTUSION [None]
  - OSTEOPOROSIS [None]
  - ANIMAL SCRATCH [None]
  - JOINT SWELLING [None]
  - DENTAL CARIES [None]
  - FEELING ABNORMAL [None]
  - BALANCE DISORDER [None]
  - ARTHRALGIA [None]
  - PAIN IN EXTREMITY [None]
  - SOMNOLENCE [None]
  - TOOTH DISORDER [None]
